FAERS Safety Report 17124910 (Version 1)
Quarter: 2019Q4

REPORT INFORMATION
  Report Type: Spontaneous
  Country: RU (occurrence: RU)
  Receive Date: 20191206
  Receipt Date: 20191206
  Transmission Date: 20200122
  Serious: Yes (Other)
  Sender: FDA-Public Use
  Company Number: RU-TOPROL ACQUISITION LLC-2019-TOP-001505

PATIENT
  Age: 66 Year
  Sex: Male
  Weight: 118 kg

DRUGS (15)
  1. METOPROLOL SUCCINATE. [Suspect]
     Active Substance: METOPROLOL SUCCINATE
     Indication: HEART RATE ABNORMAL
     Dosage: 25 OR 50 MG TWO TIMES A DAY
     Route: 048
  2. ATORVASTATIN [Concomitant]
     Active Substance: ATORVASTATIN
     Dosage: UNK
  3. OMEGA 3                            /01334101/ [Concomitant]
     Active Substance: OMEGA-3 FATTY ACIDS
     Dosage: UNK
  4. NITRENDIPINE [Concomitant]
     Active Substance: NITRENDIPINE
     Dosage: UNK
  5. NOLPAZA [Concomitant]
     Active Substance: PANTOPRAZOLE SODIUM
     Dosage: UNK
  6. CARDIOMAGNYL [Concomitant]
     Active Substance: ASPIRIN\MAGNESIUM HYDROXIDE
     Dosage: UNK
  7. CANDESARTAN. [Concomitant]
     Active Substance: CANDESARTAN
     Dosage: UNK
  8. BRILINTA [Suspect]
     Active Substance: TICAGRELOR
     Indication: MYOCARDIAL INFARCTION
     Dosage: 90 MG, BID
     Route: 048
     Dates: start: 20191012
  9. OMEPRAZOLE. [Concomitant]
     Active Substance: OMEPRAZOLE
     Dosage: UNK
  10. LEVOTHYROXINE. [Concomitant]
     Active Substance: LEVOTHYROXINE
     Dosage: UNK
  11. ENALAPRIL [Concomitant]
     Active Substance: ENALAPRIL
     Dosage: UNK
  12. TORASEMIDE [Concomitant]
     Active Substance: TORSEMIDE
     Dosage: UNK
  13. METFORMIN [Concomitant]
     Active Substance: METFORMIN HYDROCHLORIDE
     Dosage: UNK
  14. PRESTARIUM                         /00790701/ [Concomitant]
     Active Substance: PERINDOPRIL
     Dosage: UNK
  15. SILICON DIOXIDE, COLLOIDAL [Concomitant]
     Active Substance: SILICON DIOXIDE
     Dosage: UNK

REACTIONS (8)
  - Blood pressure increased [Not Recovered/Not Resolved]
  - Eructation [Not Recovered/Not Resolved]
  - Hepatic pain [Not Recovered/Not Resolved]
  - Myocardial infarction [Unknown]
  - Off label use [Not Recovered/Not Resolved]
  - Abdominal pain upper [Not Recovered/Not Resolved]
  - Blood corticotrophin decreased [Unknown]
  - Heart rate increased [Not Recovered/Not Resolved]
